FAERS Safety Report 20046097 (Version 1)
Quarter: 2021Q4

REPORT INFORMATION
  Report Type: Spontaneous
  Country: US (occurrence: None)
  Receive Date: 20211108
  Receipt Date: 20211108
  Transmission Date: 20220304
  Serious: Yes (Other)
  Sender: FDA-Public Use
  Company Number: None

PATIENT
  Sex: Male

DRUGS (1)
  1. ADVATE [Suspect]
     Active Substance: ANTIHEMOPHILIC FACTOR, HUMAN RECOMBINANT
     Indication: Factor XIII deficiency
     Dosage: OTHER QUANTITY : 1500 UNITS;?FREQUENCY : 3 TIMES A WEEK;?OTHER ROUTE : SLOW IV PUSH;?
     Route: 042
     Dates: start: 20200229

REACTIONS (2)
  - Haemorrhage [None]
  - Joint swelling [None]
